FAERS Safety Report 12571210 (Version 1)
Quarter: 2016Q3

REPORT INFORMATION
  Report Type: Spontaneous
  Country: US (occurrence: US)
  Receive Date: 20160719
  Receipt Date: 20160719
  Transmission Date: 20161109
  Serious: No
  Sender: FDA-Public Use
  Company Number: US-PFIZER INC-2016334653

PATIENT
  Sex: Male

DRUGS (1)
  1. SODIUM BICARBONATE. [Suspect]
     Active Substance: SODIUM BICARBONATE
     Dosage: UNK

REACTIONS (3)
  - Product packaging issue [Unknown]
  - Accidental exposure to product [Unknown]
  - Laceration [Unknown]
